FAERS Safety Report 8305955-0 (Version None)
Quarter: 2012Q1

REPORT INFORMATION
  Report Type: 
  Country: None (occurrence: None)
  Receive Date: 20120326
  Receipt Date: 20110222
  Transmission Date: 20120608
  Serious: Yes (Life-Threatening)
  Sender: FDA-Public Use
  Company Number: PHHY2011US14613

PATIENT
  Age: 50 Year
  Sex: Male

DRUGS (4)
  1. DRUG USED IN DIABETS (NO INGREDIENTS/SUBSTANCES) [Concomitant]
  2. LASIX [Concomitant]
  3. BETA BLOCKING AGENTS (NO INGREDIENTS/SUBSTANCES) [Concomitant]
  4. TASIGNA [Suspect]
     Indication: CHRONIC MYELOID LEUKAEMIA
     Dosage: 300 MG, BID, ORAL
     Route: 048
     Dates: start: 20101201, end: 20110101

REACTIONS (3)
  - BRADYCARDIA [None]
  - RENAL FAILURE ACUTE [None]
  - DIZZINESS [None]
